FAERS Safety Report 9569685 (Version 2)
Quarter: 2013Q3

REPORT INFORMATION
  Report Type: Spontaneous
  Country: US (occurrence: US)
  Receive Date: 20130930
  Receipt Date: 20130930
  Transmission Date: 20140515
  Serious: No
  Sender: FDA-Public Use
  Company Number: US-AMGEN-USASP2013054253

PATIENT
  Age: 59 Year
  Sex: Male
  Weight: 113.38 kg

DRUGS (4)
  1. ENBREL [Suspect]
     Indication: ANKYLOSING SPONDYLITIS
     Dosage: 50 MG, QWK
     Route: 065
     Dates: start: 20130701
  2. XANAX [Concomitant]
     Dosage: 0.25 MG, UNK
  3. AMBIEN [Concomitant]
     Dosage: 5 MG, UNK
  4. ALLOPURINOL [Concomitant]
     Dosage: 100 MG, UNK

REACTIONS (1)
  - Injection site pain [Not Recovered/Not Resolved]
